FAERS Safety Report 5069439-8 (Version None)
Quarter: 2006Q3

REPORT INFORMATION
  Report Type: 
  Country: None (occurrence: None)
  Receive Date: 20060803
  Receipt Date: 20060724
  Transmission Date: 20061208
  Serious: Yes (Death, Other)
  Sender: FDA-Public Use
  Company Number: GB-JNJFOC-20060301934

PATIENT
  Sex: Female
  Weight: 88 kg

DRUGS (19)
  1. REMICADE [Suspect]
     Route: 042
  2. REMICADE [Suspect]
     Route: 042
  3. REMICADE [Suspect]
     Route: 042
  4. REMICADE [Suspect]
     Indication: ERYTHRODERMIC PSORIASIS
     Dosage: 3 INFUSIONS
     Route: 042
  5. METHOTREXATE [Suspect]
     Indication: PUSTULAR PSORIASIS
     Route: 048
  6. CYCLOSPORINE [Suspect]
     Indication: PUSTULAR PSORIASIS
     Route: 065
  7. ACITRETIN [Concomitant]
     Route: 065
  8. HYDROXYUREA [Concomitant]
     Route: 065
  9. DAPSONE [Concomitant]
     Route: 065
  10. HYDROXYUREA [Concomitant]
  11. ASPIRIN [Concomitant]
     Route: 065
  12. FUROSEMIDE [Concomitant]
     Route: 065
  13. LANSOPRAZOLE [Concomitant]
     Route: 065
  14. BENZAFIBRATE [Concomitant]
     Route: 065
  15. ALBUTEROL SPIROS [Concomitant]
     Route: 065
  16. BETAMETHASONE [Concomitant]
     Route: 065
  17. DILTIAZEM [Concomitant]
     Route: 065
  18. DOXAZOSIN [Concomitant]
     Route: 065
  19. BALSALAZINE [Concomitant]
     Route: 065

REACTIONS (3)
  - CARDIAC FAILURE CONGESTIVE [None]
  - PNEUMONITIS [None]
  - T-CELL LYMPHOMA [None]
